FAERS Safety Report 9820716 (Version 1)
Quarter: 2013Q4

REPORT INFORMATION
  Report Type: Spontaneous
  Country: US (occurrence: None)
  Receive Date: 20131028
  Receipt Date: 20131028
  Transmission Date: 20140711
  Serious: Yes (Other)
  Sender: FDA-Public Use
  Company Number: 2013US001072

PATIENT
  Age: 25 Year
  Sex: Female

DRUGS (1)
  1. ICLUSIG [Suspect]
     Indication: CHRONIC MYELOID LEUKAEMIA
     Dates: start: 20130115

REACTIONS (4)
  - Chromaturia [None]
  - Fatigue [None]
  - Nausea [None]
  - Arthralgia [None]
